FAERS Safety Report 15234073 (Version 1)
Quarter: 2018Q3

REPORT INFORMATION
  Report Type: Spontaneous
  Country: US (occurrence: US)
  Receive Date: 20180802
  Receipt Date: 20180802
  Transmission Date: 20181010
  Serious: Yes (Hospitalization, Other)
  Sender: FDA-Public Use
  Company Number: US-BEH-2018093331

PATIENT
  Sex: Female
  Weight: 95.24 kg

DRUGS (19)
  1. PAXIL [Concomitant]
     Active Substance: PAROXETINE HYDROCHLORIDE
  2. CYCLOSPORINE. [Concomitant]
     Active Substance: CYCLOSPORINE
  3. XOLAIR [Concomitant]
     Active Substance: OMALIZUMAB
  4. POTASSIUM [Concomitant]
     Active Substance: POTASSIUM
  5. COZAAR [Concomitant]
     Active Substance: LOSARTAN POTASSIUM
  6. CINRYZE [Concomitant]
     Active Substance: HUMAN C1-ESTERASE INHIBITOR
  7. BACLOFEN. [Concomitant]
     Active Substance: BACLOFEN
  8. FIRAZYR [Concomitant]
     Active Substance: ICATIBANT ACETATE
  9. BERINERT [Suspect]
     Active Substance: HUMAN C1-ESTERASE INHIBITOR
     Dosage: 2000 IU, PRN
     Route: 058
     Dates: start: 20170207
  10. SODIUM CHLORIDE. [Concomitant]
     Active Substance: SODIUM CHLORIDE
  11. MYDAYIS [Concomitant]
     Active Substance: AMPHETAMINE ASPARTATE\AMPHETAMINE SULFATE\DEXTROAMPHETAMINE SACCHARATE\DEXTROAMPHETAMINE SULFATE
  12. EPINEPHRINE. [Concomitant]
     Active Substance: EPINEPHRINE
  13. KALBITOR [Concomitant]
     Active Substance: ECALLANTIDE
  14. NEURONTIN [Concomitant]
     Active Substance: GABAPENTIN
  15. CLONIDINE. [Concomitant]
     Active Substance: CLONIDINE
  16. TORSEMIDE. [Concomitant]
     Active Substance: TORSEMIDE
  17. DIPHENHYDRAMINE. [Concomitant]
     Active Substance: DIPHENHYDRAMINE
  18. ZOFRAN [Concomitant]
     Active Substance: ONDANSETRON HYDROCHLORIDE
  19. BERINERT [Suspect]
     Active Substance: HUMAN C1-ESTERASE INHIBITOR
     Indication: HEREDITARY ANGIOEDEMA
     Dosage: UNK
     Route: 042

REACTIONS (2)
  - Sepsis [Unknown]
  - Pancreatitis [Unknown]
